FAERS Safety Report 21993823 (Version 2)
Quarter: 2023Q1

REPORT INFORMATION
  Report Type: Other
  Country: US (occurrence: None)
  Receive Date: 20230215
  Receipt Date: 20230223
  Transmission Date: 20230418
  Serious: Yes (Hospitalization)
  Sender: FDA-Public Use
  Company Number: US-ROCHE-3283979

PATIENT
  Age: 69 Year
  Sex: Male

DRUGS (9)
  1. GAZYVA [Suspect]
     Active Substance: OBINUTUZUMAB
     Indication: B-cell lymphoma
     Dosage: ON DAY 1
     Route: 042
  2. GAZYVA [Suspect]
     Active Substance: OBINUTUZUMAB
     Dosage: ON DAY 2
     Route: 042
  3. GAZYVA [Suspect]
     Active Substance: OBINUTUZUMAB
     Dosage: ON DAY 08 TO 15
     Route: 042
  4. GAZYVA [Suspect]
     Active Substance: OBINUTUZUMAB
     Dosage: DATE OF TREATMENT-20/AUG/2022
     Route: 042
  5. VENCLEXTA [Suspect]
     Active Substance: VENETOCLAX
     Indication: B-cell lymphoma
     Dosage: ON DAY 1 TO DAY 28
     Route: 048
     Dates: start: 202209, end: 202209
  6. DECADRON [Concomitant]
     Active Substance: DEXAMETHASONE
  7. ALLOPURINOL [Concomitant]
     Active Substance: ALLOPURINOL
  8. ACYCLOVIR [Concomitant]
     Active Substance: ACYCLOVIR
  9. BACTRIM DS [Concomitant]
     Active Substance: SULFAMETHOXAZOLE\TRIMETHOPRIM

REACTIONS (3)
  - Toxicity to various agents [Recovered/Resolved]
  - Malaise [Unknown]
  - Off label use [Unknown]

NARRATIVE: CASE EVENT DATE: 20220901
